FAERS Safety Report 18601453 (Version 1)
Quarter: 2020Q4

REPORT INFORMATION
  Report Type: Spontaneous
  Country: US (occurrence: US)
  Receive Date: 20201210
  Receipt Date: 20201210
  Transmission Date: 20210114
  Serious: Yes (Other)
  Sender: FDA-Public Use
  Company Number: US-ASTRAZENECA-2020SF63736

PATIENT
  Sex: Female

DRUGS (4)
  1. FASENRA [Suspect]
     Active Substance: BENRALIZUMAB
     Indication: ASTHMA
     Route: 058
     Dates: start: 201910
  2. OXYGEN. [Concomitant]
     Active Substance: OXYGEN
     Dosage: 24/7 VIA FACEMASK VIA CONCENTRATOR AT 4 L ARE REST AND 5 L FOR ACTIVITY
     Dates: start: 2011
  3. FASENRA [Suspect]
     Active Substance: BENRALIZUMAB
     Dosage: UNKNOWN
     Route: 058
  4. ACYCLOVIR. [Concomitant]
     Active Substance: ACYCLOVIR

REACTIONS (10)
  - Sinusitis [Unknown]
  - General physical health deterioration [Unknown]
  - Herpes zoster [Not Recovered/Not Resolved]
  - Somnolence [Unknown]
  - Gait disturbance [Unknown]
  - Injection site pain [Unknown]
  - Oxygen saturation decreased [Unknown]
  - Asthma [Recovered/Resolved]
  - Drug ineffective [Unknown]
  - Headache [Recovering/Resolving]
